FAERS Safety Report 5638798-7 (Version None)
Quarter: 2008Q1

REPORT INFORMATION
  Report Type: 
  Country: None (occurrence: None)
  Receive Date: 20080226
  Receipt Date: 20080212
  Transmission Date: 20080703
  Serious: Yes (Hospitalization, Disabling)
  Sender: FDA-Public Use
  Company Number: US-KINGPHARMUSA00001-K200800066

PATIENT

DRUGS (5)
  1. ALTACE [Suspect]
     Indication: PROPHYLAXIS
     Dosage: 2.5 MG, QD
     Route: 048
     Dates: start: 20040901
  2. ALTACE [Suspect]
     Dosage: 5 MG, QD
     Dates: start: 20040901
  3. ALTACE [Suspect]
     Dosage: 10 MG, QD
     Route: 048
     Dates: start: 20040901, end: 20080103
  4. HUMALOG [Concomitant]
     Indication: TYPE 1 DIABETES MELLITUS
     Route: 058
     Dates: start: 19990101
  5. HUMULIN N [Concomitant]
     Indication: TYPE 1 DIABETES MELLITUS
     Dosage: UNK, BID
     Route: 058
     Dates: start: 19990101

REACTIONS (7)
  - ANOREXIA [None]
  - DIARRHOEA [None]
  - FEAR [None]
  - INSOMNIA [None]
  - SMALL BOWEL ANGIOEDEMA [None]
  - VIRAL UPPER RESPIRATORY TRACT INFECTION [None]
  - WEIGHT DECREASED [None]
